FAERS Safety Report 19540272 (Version 2)
Quarter: 2021Q3

REPORT INFORMATION
  Report Type: Spontaneous
  Country: US (occurrence: US)
  Receive Date: 20210714
  Receipt Date: 20210818
  Transmission Date: 20211014
  Serious: Yes (Hospitalization)
  Sender: FDA-Public Use
  Company Number: US-ROCHE-2842032

PATIENT
  Sex: Male

DRUGS (1)
  1. ESBRIET [Suspect]
     Active Substance: PIRFENIDONE
     Indication: IDIOPATHIC PULMONARY FIBROSIS
     Dosage: 1 TABLET 3 TIMES DAILY?WEEK 1, 2 TABLETS 3 TIMES DAILY?WEEK 2, THEN 3 TABLETS 3 TIMES DAILY
     Route: 048
     Dates: start: 20210511

REACTIONS (9)
  - Decreased appetite [Unknown]
  - Oxygen saturation decreased [Unknown]
  - Chest pain [Unknown]
  - Loss of consciousness [Unknown]
  - Abdominal discomfort [Unknown]
  - Blood glucose decreased [Unknown]
  - Abdominal pain upper [Unknown]
  - Hypotension [Unknown]
  - Vomiting [Unknown]
